FAERS Safety Report 17523681 (Version 2)
Quarter: 2020Q1

REPORT INFORMATION
  Report Type: Spontaneous
  Country: GB (occurrence: GB)
  Receive Date: 20200310
  Receipt Date: 20200319
  Transmission Date: 20200409
  Serious: Yes (Hospitalization, Other)
  Sender: FDA-Public Use
  Company Number: GB-PFIZER INC-2019528513

PATIENT
  Age: 63 Year
  Sex: Female

DRUGS (6)
  1. CLINDAMYCIN HCL [Suspect]
     Active Substance: CLINDAMYCIN HYDROCHLORIDE
     Dosage: UNK
     Route: 048
     Dates: end: 201910
  2. LEVOTHYROXINE. [Concomitant]
     Active Substance: LEVOTHYROXINE
     Dosage: 100 UG, 1X/DAY
     Route: 048
  3. LINEZOLID. [Suspect]
     Active Substance: LINEZOLID
     Dosage: 400 MG, 1X/DAY (PRESCRIBED AT RECENT DISCHARGE 1/11/19)
     Route: 048
     Dates: start: 20191009
  4. TEICOPLANIN [Suspect]
     Active Substance: TEICOPLANIN
     Dosage: 3 G, SINGLE (STARTED AT HOSPITAL)
     Dates: end: 201910
  5. CIPROFLOXACIN. [Suspect]
     Active Substance: CIPROFLOXACIN
     Dosage: 1000 MG, 1X/DAY
     Route: 048
     Dates: end: 201910
  6. LYMECYCLINE [Concomitant]
     Active Substance: LYMECYCLINE
     Dosage: 408 MG, 1X/DAY
     Route: 048

REACTIONS (1)
  - Drug reaction with eosinophilia and systemic symptoms [Not Recovered/Not Resolved]

NARRATIVE: CASE EVENT DATE: 20190904
